FAERS Safety Report 9403825 (Version 1)
Quarter: 2013Q3

REPORT INFORMATION
  Report Type: Spontaneous
  Country: US (occurrence: US)
  Receive Date: 20130717
  Receipt Date: 20130717
  Transmission Date: 20140515
  Serious: No
  Sender: FDA-Public Use
  Company Number: US-BIOGENIDEC-2013BI052881

PATIENT
  Age: 68 Year
  Sex: Male
  Weight: 96 kg

DRUGS (10)
  1. TYSABRI [Suspect]
     Indication: MULTIPLE SCLEROSIS
     Route: 042
  2. TYSABRI [Suspect]
     Indication: MULTIPLE SCLEROSIS
     Route: 042
     Dates: start: 20050210, end: 2006
  3. TYSABRI [Suspect]
     Indication: MULTIPLE SCLEROSIS
     Route: 042
     Dates: start: 20061121, end: 20120702
  4. AMPYRA [Concomitant]
     Indication: BALANCE DISORDER
     Route: 048
     Dates: start: 2012
  5. LYRICA [Concomitant]
     Dates: start: 2005
  6. ALLEGRA [Concomitant]
     Indication: MULTIPLE ALLERGIES
  7. AMLODIPINE [Concomitant]
     Indication: HYPERTENSION
  8. BENAZEPRIL HCL [Concomitant]
     Indication: HYPERTENSION
  9. GILENYA [Concomitant]
     Dates: start: 201202
  10. DETROL [Concomitant]
     Indication: INCONTINENCE
     Route: 048
     Dates: start: 2011

REACTIONS (3)
  - Balance disorder [Recovered/Resolved]
  - Asthenia [Recovered/Resolved]
  - Drug effect decreased [Recovered/Resolved]
